FAERS Safety Report 22210385 (Version 2)
Quarter: 2023Q2

REPORT INFORMATION
  Report Type: Report from Study
  Country: US (occurrence: US)
  Receive Date: 20230414
  Receipt Date: 20230508
  Transmission Date: 20230721
  Serious: Yes (Hospitalization)
  Sender: FDA-Public Use
  Company Number: US-JNJFOC-20230411356

PATIENT
  Age: 66 Year
  Sex: Male
  Weight: 100.5 kg

DRUGS (7)
  1. DARATUMUMAB [Suspect]
     Active Substance: DARATUMUMAB
     Indication: Non-Hodgkin^s lymphoma
     Route: 065
     Dates: start: 20230324
  2. ETOPOSIDE PHOSPHATE [Suspect]
     Active Substance: ETOPOSIDE PHOSPHATE
     Indication: Non-Hodgkin^s lymphoma
     Route: 065
     Dates: start: 20230324
  3. PREDNISONE [Suspect]
     Active Substance: PREDNISONE
     Indication: Non-Hodgkin^s lymphoma
     Route: 065
     Dates: start: 20230324
  4. VINCRISTINE SULFATE [Suspect]
     Active Substance: VINCRISTINE SULFATE
     Indication: Non-Hodgkin^s lymphoma
     Route: 065
     Dates: start: 20230324
  5. CYCLOPHOSPHAMIDE [Suspect]
     Active Substance: CYCLOPHOSPHAMIDE
     Indication: Non-Hodgkin^s lymphoma
     Route: 065
     Dates: start: 20230324
  6. DOXORUBICIN HYDROCHLORIDE [Suspect]
     Active Substance: DOXORUBICIN HYDROCHLORIDE
     Indication: Non-Hodgkin^s lymphoma
     Route: 065
     Dates: start: 20230324
  7. RITUXIMAB [Suspect]
     Active Substance: RITUXIMAB
     Indication: Non-Hodgkin^s lymphoma
     Route: 065
     Dates: start: 20230324

REACTIONS (1)
  - Atrial fibrillation [Unknown]

NARRATIVE: CASE EVENT DATE: 20230329
